FAERS Safety Report 12565687 (Version 1)
Quarter: 2016Q3

REPORT INFORMATION
  Report Type: Spontaneous
  Country: US (occurrence: US)
  Receive Date: 20160718
  Receipt Date: 20160718
  Transmission Date: 20161109
  Serious: Yes (Hospitalization)
  Sender: FDA-Public Use
  Company Number: US-PFIZER INC-2016337652

PATIENT
  Age: 63 Year
  Sex: Male
  Weight: 68 kg

DRUGS (9)
  1. ASPIRIN. [Concomitant]
     Active Substance: ASPIRIN
     Indication: MYOCARDIAL INFARCTION
     Dosage: 81 MG, 1X/DAY; BY MOUTH ONCE A DAY
     Route: 048
  2. BACLOFEN. [Concomitant]
     Active Substance: BACLOFEN
     Indication: MUSCLE SPASMS
  3. LYRICA [Concomitant]
     Active Substance: PREGABALIN
     Indication: MUSCLE SPASMS
  4. ATORVASTATIN CALCIUM. [Suspect]
     Active Substance: ATORVASTATIN CALCIUM
     Indication: BLOOD CHOLESTEROL INCREASED
     Dosage: 10 MG, 1X/DAY, AT NIGHT
     Route: 048
     Dates: start: 20160503
  5. LYRICA [Concomitant]
     Active Substance: PREGABALIN
     Indication: SPINAL CORD INJURY
  6. BACLOFEN. [Concomitant]
     Active Substance: BACLOFEN
     Indication: NERVE INJURY
     Dosage: 10 MG, 2X/DAY BY MOUTH
     Route: 048
  7. BACLOFEN. [Concomitant]
     Active Substance: BACLOFEN
     Indication: SPINAL CORD INJURY
  8. LYRICA [Concomitant]
     Active Substance: PREGABALIN
     Indication: NERVE INJURY
     Dosage: 100 MG, 2X/DAY BY MOUTH
     Route: 048
  9. TAMSULOSIN [Concomitant]
     Active Substance: TAMSULOSIN
     Indication: POLLAKIURIA
     Dosage: 0.5 MG, 1X/DAY BY MOUTH
     Route: 048

REACTIONS (5)
  - Chest pain [Unknown]
  - Restlessness [Unknown]
  - Anxiety [Unknown]
  - Paraesthesia [Not Recovered/Not Resolved]
  - Insomnia [Not Recovered/Not Resolved]

NARRATIVE: CASE EVENT DATE: 20160628
